FAERS Safety Report 23914893 (Version 4)
Quarter: 2024Q4

REPORT INFORMATION
  Report Type: Spontaneous
  Country: US (occurrence: US)
  Receive Date: 20240529
  Receipt Date: 20241011
  Transmission Date: 20250114
  Serious: Yes (Other)
  Sender: BRISTOL MYERS SQUIBB
  Company Number: US-BRISTOL-MYERS SQUIBB COMPANY-2024-085205

PATIENT
  Age: 82 Year
  Sex: Female
  Weight: 54.24 kg

DRUGS (11)
  1. POMALYST [Suspect]
     Active Substance: POMALIDOMIDE
     Indication: Plasma cell myeloma
     Dosage: FREQUENCY: 2 MG CAPSULE ONCE DAILY 21 DAYS ON 7 DAYS OFF
     Route: 048
     Dates: start: 20240426
  2. POMALYST [Suspect]
     Active Substance: POMALIDOMIDE
     Dosage: EVERY DAY FOR 21 DAYS AND 7 DAYS OFF FOR A 28-DAY CYCLE
     Route: 048
     Dates: start: 20240426
  3. POMALYST [Suspect]
     Active Substance: POMALIDOMIDE
     Dosage: EVERY OTHER DAY
     Route: 048
     Dates: start: 20240517
  4. DEXAMETHASONE [Concomitant]
     Active Substance: DEXAMETHASONE
     Indication: Product used for unknown indication
  5. ASPIRIN [Concomitant]
     Active Substance: ASPIRIN
     Indication: Product used for unknown indication
  6. ALEVE [Concomitant]
     Active Substance: NAPROXEN SODIUM
     Indication: Product used for unknown indication
  7. ALPRAZOLAM [Concomitant]
     Active Substance: ALPRAZOLAM
     Indication: Product used for unknown indication
  8. OMEPRAZOLE [Concomitant]
     Active Substance: OMEPRAZOLE
     Indication: Product used for unknown indication
  9. VITAMINS NOS [Concomitant]
     Active Substance: VITAMINS
     Indication: Product used for unknown indication
  10. VALTREX [Concomitant]
     Active Substance: VALACYCLOVIR HYDROCHLORIDE
     Indication: Product used for unknown indication
  11. ACYCLOVIR [Concomitant]
     Active Substance: ACYCLOVIR
     Indication: Product used for unknown indication

REACTIONS (6)
  - Off label use [Unknown]
  - Pancytopenia [Unknown]
  - Middle ear effusion [Unknown]
  - Ear infection [Unknown]
  - Oropharyngeal pain [Unknown]
  - White blood cell count decreased [Unknown]
